FAERS Safety Report 5902393-2 (Version None)
Quarter: 2008Q3

REPORT INFORMATION
  Report Type: 
  Country: None (occurrence: None)
  Receive Date: 20080929
  Receipt Date: 20080918
  Transmission Date: 20090109
  Serious: Yes (Other)
  Sender: FDA-Public Use
  Company Number: FR-ASTRAZENECA-2008CG01385

PATIENT
  Age: 67 Year
  Sex: Male

DRUGS (4)
  1. CASODEX [Suspect]
     Indication: PROSTATE CANCER
     Route: 048
     Dates: start: 20080502
  2. ZOLADEX [Suspect]
     Indication: PROSTATE CANCER
     Route: 058
     Dates: start: 20080502
  3. RADIOTHERAPY [Concomitant]
     Indication: PROSTATE CANCER
     Dosage: TWO GRAYS DAILY FIVE DAYS PER WEEK
     Dates: start: 20080901
  4. ANTI-GLAUCOMA [Concomitant]
     Indication: GLAUCOMA

REACTIONS (1)
  - OPTIC NEUROPATHY [None]
